FAERS Safety Report 7891694-7 (Version None)
Quarter: 2011Q4

REPORT INFORMATION
  Report Type: 
  Country: None (occurrence: None)
  Receive Date: 20111103
  Receipt Date: 20110809
  Transmission Date: 20120403
  Serious: No
  Sender: FDA-Public Use
  Company Number: US-AMGEN-USASP2011040359

PATIENT
  Age: 30 Year
  Sex: Female

DRUGS (1)
  1. ENBREL [Suspect]
     Indication: PSORIATIC ARTHROPATHY
     Dosage: 50 MG, 2 TIMES/WK
     Dates: start: 20070801

REACTIONS (7)
  - COUGH [None]
  - PULMONARY CONGESTION [None]
  - INJECTION SITE PRURITUS [None]
  - INJECTION SITE PAIN [None]
  - LARYNGITIS [None]
  - INJECTION SITE WARMTH [None]
  - INJECTION SITE SWELLING [None]
